FAERS Safety Report 21411450 (Version 7)
Quarter: 2025Q1

REPORT INFORMATION
  Report Type: Spontaneous
  Country: US (occurrence: US)
  Receive Date: 20221005
  Receipt Date: 20250221
  Transmission Date: 20250408
  Serious: No
  Sender: PFIZER
  Company Number: US-PFIZER INC-202201204551

PATIENT
  Age: 73 Year
  Sex: Female

DRUGS (4)
  1. VIZIMPRO [Suspect]
     Active Substance: DACOMITINIB
     Indication: Lung adenocarcinoma stage IV
     Route: 048
     Dates: start: 202209
  2. VIZIMPRO [Suspect]
     Active Substance: DACOMITINIB
     Indication: Non-small cell lung cancer stage IV
     Dosage: 30 MG, DAILY (2 TABS ORAL DAILY)
     Route: 048
     Dates: start: 202210, end: 202410
  3. VIZIMPRO [Suspect]
     Active Substance: DACOMITINIB
     Dosage: 30 MG, DAILY
     Route: 048
  4. VIZIMPRO [Suspect]
     Active Substance: DACOMITINIB
     Dosage: 15 MG, DAILY
     Route: 048

REACTIONS (10)
  - Skin lesion [Unknown]
  - Erythema [Unknown]
  - Paronychia [Recovering/Resolving]
  - Immature granulocyte percentage increased [Unknown]
  - Granulocyte count increased [Unknown]
  - Blood chloride decreased [Unknown]
  - Blood alkaline phosphatase increased [Unknown]
  - Diarrhoea [Recovered/Resolved]
  - Fatigue [Unknown]
  - Intentional product misuse [Unknown]

NARRATIVE: CASE EVENT DATE: 20221001
